APPROVED DRUG PRODUCT: CALCIPOTRIENE
Active Ingredient: CALCIPOTRIENE
Strength: 0.005%
Dosage Form/Route: SOLUTION;TOPICAL
Application: A077579 | Product #001
Applicant: HIKMA PHARMACEUTICALS USA INC
Approved: Nov 19, 2009 | RLD: No | RS: No | Type: DISCN